FAERS Safety Report 10975868 (Version 1)
Quarter: 2015Q2

REPORT INFORMATION
  Report Type: Spontaneous
  Country: JP (occurrence: JP)
  Receive Date: 20150401
  Receipt Date: 20150401
  Transmission Date: 20150821
  Serious: Yes (Other)
  Sender: FDA-Public Use
  Company Number: JP-ASTRAZENECA-2015SE27470

PATIENT
  Age: 66 Year
  Sex: Male

DRUGS (3)
  1. NOLVADEX [Suspect]
     Active Substance: TAMOXIFEN CITRATE
     Indication: BREAST CANCER RECURRENT
     Dosage: DOSE UNKNOWN
     Route: 048
     Dates: start: 201311, end: 201401
  2. CASODEX [Suspect]
     Active Substance: BICALUTAMIDE
     Indication: PROSTATE CANCER
     Route: 048
     Dates: start: 201311, end: 201401
  3. LEUPLIN [Suspect]
     Active Substance: LEUPROLIDE ACETATE
     Route: 058
     Dates: start: 201311, end: 201401

REACTIONS (2)
  - Hepatic function abnormal [Unknown]
  - Lipids abnormal [Unknown]

NARRATIVE: CASE EVENT DATE: 201312
